FAERS Safety Report 14843465 (Version 1)
Quarter: 2018Q2

REPORT INFORMATION
  Report Type: Spontaneous
  Country: IT (occurrence: IT)
  Receive Date: 20180503
  Receipt Date: 20180503
  Transmission Date: 20180711
  Serious: Yes (Other)
  Sender: FDA-Public Use
  Company Number: IT-MYLANLABS-2018M1028138

PATIENT
  Sex: Female

DRUGS (5)
  1. TAMOXIFEN [Suspect]
     Active Substance: TAMOXIFEN
     Indication: BREAST CANCER
     Dosage: 20 MG/DAY ? ATRA ? INTERFERON OVER 3 CONSECUTIVE WEEKS
     Route: 065
  2. INTERFERON ALFA-2A [Suspect]
     Active Substance: INTERFERON ALFA-2A
     Indication: BREAST CANCER
     Dosage: 3X10^6 IU ? ATRA ? INTERFERON, ADMINISTERED ON DAYS 1,3,5/WEEK, OVER 3 CONSECUTIVE WEEKS
     Route: 030
  3. TRETINOIN. [Suspect]
     Active Substance: TRETINOIN
     Indication: BREAST CANCER
     Dosage: 15 MG/M^2/DAY ATRA ? TAMOXIFEN ? INTERFERON, ADMINISTERED ON DAYS 1,3,5,7/WEEK, OVER 3 WEEKS
     Route: 048
  4. TRETINOIN. [Suspect]
     Active Substance: TRETINOIN
     Dosage: 45 MG/M^2/DAY ATRA ? TAMOXIFEN ? INTERFERON, ADMINISTERED ON DAYS 1,3,5,7/WEEK, OVER 3 WEEKS
     Route: 048
  5. TRETINOIN. [Suspect]
     Active Substance: TRETINOIN
     Dosage: 75 MG/M^2/DAY ATRA ? TAMOXIFEN ? INTERFERON, ADMINISTERED ON DAYS 1,3,5,7/WEEK, OVER 3 WEEKS
     Route: 048

REACTIONS (13)
  - Influenza like illness [Unknown]
  - Hypertriglyceridaemia [Unknown]
  - Product use in unapproved indication [Unknown]
  - Anaemia [Unknown]
  - Headache [Unknown]
  - Pyrexia [Unknown]
  - Leukopenia [Unknown]
  - Hypercholesterolaemia [Unknown]
  - Bone marrow failure [Unknown]
  - Thrombocytopenia [Unknown]
  - Aspartate aminotransferase increased [Unknown]
  - Alanine aminotransferase increased [Unknown]
  - Myalgia [Unknown]
